FAERS Safety Report 9844550 (Version 2)
Quarter: 2014Q2

REPORT INFORMATION
  Report Type: Spontaneous
  Country: RS (occurrence: None)
  Receive Date: 20140123
  Receipt Date: 20140502
  Transmission Date: 20141212
  Serious: Yes (Hospitalization)
  Sender: FDA-Public Use
  Company Number: 7263383

PATIENT
  Age: 40 Year
  Sex: Female

DRUGS (2)
  1. EUTHYROX [Suspect]
     Indication: THYROIDECTOMY
     Route: 048
  2. LEVOTHYROXINE [Suspect]
     Indication: THYROIDECTOMY
     Dosage: 600MG.ORAL, ONGOING.

REACTIONS (3)
  - Hypothyroidism [None]
  - No therapeutic response [None]
  - Condition aggravated [None]
